FAERS Safety Report 4828189-0 (Version None)
Quarter: 2005Q4

REPORT INFORMATION
  Report Type: 
  Country: None (occurrence: None)
  Receive Date: 20051115
  Receipt Date: 20051114
  Transmission Date: 20060501
  Serious: Yes (Hospitalization)
  Sender: FDA-Public Use
  Company Number: US-GLAXOSMITHKLINE-A0582185A

PATIENT
  Age: 75 Year
  Sex: Male

DRUGS (2)
  1. COREG [Suspect]
     Indication: DRUG USE FOR UNKNOWN INDICATION
     Route: 048
     Dates: start: 20041218, end: 20041220
  2. HEART MEDICATION [Concomitant]

REACTIONS (2)
  - DYSKINESIA [None]
  - MASTICATION DISORDER [None]
